FAERS Safety Report 15364762 (Version 1)
Quarter: 2018Q3

REPORT INFORMATION
  Report Type: Spontaneous
  Country: US (occurrence: US)
  Receive Date: 20180910
  Receipt Date: 20180910
  Transmission Date: 20181010
  Serious: No
  Sender: FDA-Public Use
  Company Number: US-ELI_LILLY_AND_COMPANY-US201806009518

PATIENT
  Age: 65 Year
  Sex: Female

DRUGS (4)
  1. HUMULIN N [Suspect]
     Active Substance: INSULIN HUMAN
     Dosage: 36 U, EACH EVENING
     Route: 058
  2. HUMULIN N [Suspect]
     Active Substance: INSULIN HUMAN
     Indication: DIABETES MELLITUS
     Dosage: 34 U, BID
     Route: 058
     Dates: start: 201804
  3. HUMULIN N [Suspect]
     Active Substance: INSULIN HUMAN
     Dosage: 34 U, BID
     Route: 058
     Dates: start: 20180730
  4. HUMULIN N [Suspect]
     Active Substance: INSULIN HUMAN
     Dosage: 44 U, EACH MORNING
     Route: 058

REACTIONS (4)
  - Blepharospasm [Not Recovered/Not Resolved]
  - Palpitations [Not Recovered/Not Resolved]
  - Drug dose omission [Not Recovered/Not Resolved]
  - Drug dose omission [Unknown]

NARRATIVE: CASE EVENT DATE: 20180619
